FAERS Safety Report 5297420-2 (Version None)
Quarter: 2007Q2

REPORT INFORMATION
  Report Type: 
  Country: None (occurrence: None)
  Receive Date: 20070416
  Receipt Date: 20070403
  Transmission Date: 20071010
  Serious: Yes (Hospitalization)
  Sender: FDA-Public Use
  Company Number: FR-PFIZER INC-2007024638

PATIENT
  Age: 80 Year
  Sex: Male

DRUGS (5)
  1. CELEBREX [Suspect]
  2. PLAVIX [Suspect]
  3. KARDEGIC [Interacting]
  4. DEXTROPROPOXYPHENE HYDROCHLORIDE [Concomitant]
  5. SIMVASTATIN [Concomitant]

REACTIONS (4)
  - ANAEMIA [None]
  - DRUG INTERACTION [None]
  - GASTROINTESTINAL HAEMORRHAGE [None]
  - MELAENA [None]
